FAERS Safety Report 6960328-8 (Version None)
Quarter: 2010Q3

REPORT INFORMATION
  Report Type: 
  Country: None (occurrence: None)
  Receive Date: 20100901
  Receipt Date: 20100824
  Transmission Date: 20110219
  Serious: Yes (Life-Threatening)
  Sender: FDA-Public Use
  Company Number: FR-SANOFI-AVENTIS-2010SA050044

PATIENT
  Age: 86 Year
  Sex: Female

DRUGS (10)
  1. LASIX [Suspect]
     Route: 048
     Dates: start: 20090101
  2. RIFADIN [Suspect]
     Indication: OSTEITIS
     Route: 048
     Dates: start: 20100414
  3. LEVOFLOXACIN [Suspect]
     Route: 048
     Dates: start: 20100414
  4. FUCIDINE CAP [Suspect]
     Indication: OSTEITIS
     Route: 048
     Dates: start: 20100414
  5. SERESTA [Suspect]
     Indication: ANXIETY
     Route: 048
     Dates: start: 20100413
  6. CORDARONE [Concomitant]
     Indication: ATRIAL FIBRILLATION
     Route: 048
  7. PREVISCAN [Concomitant]
     Route: 048
     Dates: end: 20100419
  8. LEVOTHYROXINE SODIUM [Concomitant]
     Indication: HYPOTHYROIDISM
     Route: 048
  9. MOTILIUM [Concomitant]
     Route: 048
     Dates: start: 20070101
  10. GABAPENTIN [Concomitant]
     Route: 048
     Dates: start: 20070101

REACTIONS (1)
  - RENAL FAILURE ACUTE [None]
